FAERS Safety Report 5633585-8 (Version None)
Quarter: 2008Q1

REPORT INFORMATION
  Report Type: 
  Country: None (occurrence: None)
  Receive Date: 20080221
  Receipt Date: 20080212
  Transmission Date: 20080703
  Serious: Yes (Other)
  Sender: FDA-Public Use
  Company Number: US-PFIZER INC-2008013677

PATIENT
  Sex: Male

DRUGS (3)
  1. CLEOCIN HCL CAPSULE [Suspect]
     Indication: INFECTION PROPHYLAXIS
  2. MOTRIN [Concomitant]
  3. VICODIN [Concomitant]

REACTIONS (1)
  - CHROMATURIA [None]
